FAERS Safety Report 20112004 (Version 1)
Quarter: 2021Q4

REPORT INFORMATION
  Report Type: Spontaneous
  Country: NL (occurrence: NL)
  Receive Date: 20211125
  Receipt Date: 20211125
  Transmission Date: 20220303
  Serious: Yes (Life-Threatening, Hospitalization, Disabling)
  Sender: FDA-Public Use
  Company Number: NL-LRB-00708836

PATIENT
  Age: 45 Year
  Sex: Female
  Weight: 75 kg

DRUGS (3)
  1. SERTRALINE [Suspect]
     Active Substance: SERTRALINE HYDROCHLORIDE
     Indication: Depression
     Dosage: 50 MILLIGRAM, DAILY, 1 DD 1
     Route: 065
     Dates: start: 20210928, end: 20211105
  2. METOPROLOL TABLET   50MG / Brand name not specified [Concomitant]
     Indication: Product used for unknown indication
     Dosage: TABLET, 50 MG (MILLIGRAM) ()
     Route: 065
  3. LOSARTAN TABLET FO 100MG / COZAAR TABLET FILM COATED 100MG [Concomitant]
     Indication: Product used for unknown indication
     Dosage: FILM-COATED TABLET, 100 MG (MILLIGRAM) ()
     Route: 065

REACTIONS (1)
  - Subarachnoid haemorrhage [Recovering/Resolving]

NARRATIVE: CASE EVENT DATE: 20211009
